FAERS Safety Report 20689719 (Version 15)
Quarter: 2023Q4

REPORT INFORMATION
  Report Type: Report from Study
  Country: IT (occurrence: IT)
  Receive Date: 20220408
  Receipt Date: 20231212
  Transmission Date: 20240110
  Serious: Yes (Hospitalization, Other)
  Sender: FDA-Public Use
  Company Number: IT-TAKEDA-2021TUS042345

PATIENT
  Age: 9 Year
  Sex: Male

DRUGS (11)
  1. IDURSULFASE [Suspect]
     Active Substance: IDURSULFASE
     Indication: Mucopolysaccharidosis II
     Dosage: 3 DOSAGE FORM, 1/WEEK
     Route: 042
     Dates: start: 20150424
  2. IDURSULFASE [Suspect]
     Active Substance: IDURSULFASE
     Dosage: 3 DOSAGE FORM, 1/WEEK
     Route: 042
  3. IDURSULFASE [Suspect]
     Active Substance: IDURSULFASE
     Dosage: 3 DOSAGE FORM, 1/WEEK
     Route: 042
  4. IDURSULFASE [Suspect]
     Active Substance: IDURSULFASE
     Dosage: 3 DOSAGE FORM, 1/WEEK
     Route: 042
  5. IDURSULFASE [Suspect]
     Active Substance: IDURSULFASE
     Dosage: 3 DOSAGE FORM, 1/WEEK
     Route: 042
  6. IDURSULFASE [Suspect]
     Active Substance: IDURSULFASE
     Dosage: 3 DOSAGE FORM, 1/WEEK
     Route: 042
  7. IDURSULFASE [Suspect]
     Active Substance: IDURSULFASE
     Dosage: 3 DOSAGE FORM, 1/WEEK
     Route: 042
  8. IDURSULFASE [Suspect]
     Active Substance: IDURSULFASE
     Dosage: 3 DOSAGE FORM, 1/WEEK
     Route: 042
  9. IDURSULFASE [Suspect]
     Active Substance: IDURSULFASE
     Dosage: 3 DOSAGE FORM, 1/WEEK
     Route: 042
  10. IDURSULFASE [Suspect]
     Active Substance: IDURSULFASE
     Dosage: 3 DOSAGE FORM, 1/WEEK
     Route: 042
  11. IDURSULFASE [Suspect]
     Active Substance: IDURSULFASE
     Dosage: 3 DOSAGE FORM, 1/WEEK
     Route: 042

REACTIONS (36)
  - COVID-19 pneumonia [Not Recovered/Not Resolved]
  - Altered state of consciousness [Not Recovered/Not Resolved]
  - Constipation [Not Recovered/Not Resolved]
  - Muscle spasms [Not Recovered/Not Resolved]
  - Patient uncooperative [Unknown]
  - Infusion site injury [Unknown]
  - Agitation [Recovered/Resolved]
  - Pain [Recovered/Resolved]
  - Mesenteric lymphadenitis [Recovered/Resolved]
  - Spontaneous penile erection [Recovered/Resolved]
  - COVID-19 [Not Recovered/Not Resolved]
  - Hyperhidrosis [Recovered/Resolved]
  - Pallor [Recovered/Resolved]
  - Oxygen saturation abnormal [Recovered/Resolved]
  - Poor peripheral circulation [Recovered/Resolved]
  - Breath sounds abnormal [Recovered/Resolved]
  - Nasopharyngitis [Not Recovered/Not Resolved]
  - Asthenia [Not Recovered/Not Resolved]
  - Catarrh [Not Recovered/Not Resolved]
  - Head injury [Not Recovered/Not Resolved]
  - Abnormal faeces [Recovered/Resolved]
  - Gastroenteritis [Recovered/Resolved]
  - Productive cough [Unknown]
  - Somnolence [Not Recovered/Not Resolved]
  - Dehydration [Recovered/Resolved]
  - Device leakage [Recovered/Resolved]
  - Malaise [Unknown]
  - Poor venous access [Recovering/Resolving]
  - Cough [Recovered/Resolved]
  - Dyspnoea [Recovered/Resolved]
  - Pyrexia [Not Recovered/Not Resolved]
  - Abdominal pain [Not Recovered/Not Resolved]
  - Hypotension [Recovered/Resolved]
  - Inappropriate schedule of product administration [Not Recovered/Not Resolved]
  - Product dose omission issue [Recovered/Resolved]
  - Incorrect dose administered [Not Recovered/Not Resolved]

NARRATIVE: CASE EVENT DATE: 20210630
